FAERS Safety Report 24782822 (Version 1)
Quarter: 2024Q4

REPORT INFORMATION
  Report Type: Spontaneous
  Country: CN (occurrence: CN)
  Receive Date: 20241227
  Receipt Date: 20241227
  Transmission Date: 20250115
  Serious: Yes (Other)
  Sender: MELINTA THERAPEUTICS
  Company Number: CN-ASTRAZENECA-202412CHN013470CN

PATIENT

DRUGS (2)
  1. METOPROLOL SUCCINATE [Suspect]
     Active Substance: METOPROLOL SUCCINATE
     Indication: Bradycardia
     Dosage: 47.5 MILLIGRAM, QD
     Route: 048
     Dates: start: 20240919, end: 20241010
  2. ASPIRIN\METOPROLOL SUCCINATE [Suspect]
     Active Substance: ASPIRIN\METOPROLOL SUCCINATE
     Indication: Bradycardia
     Dosage: 47.5 MILLIGRAM, QD
     Route: 048
     Dates: start: 20241011, end: 20241028

REACTIONS (1)
  - Atrioventricular block first degree [Recovering/Resolving]

NARRATIVE: CASE EVENT DATE: 20241020
